FAERS Safety Report 8118971 (Version 6)
Quarter: 2013Q1

REPORT INFORMATION
  Report Type: Report from Study
  Country: JP (occurrence: JP)
  Receive Date: 20110902
  Receipt Date: 20130121
  Transmission Date: 20140127
  Serious: Yes (Hospitalization)
  Sender: FDA-Public Use
  Company Number: PHHO2011JP14460

PATIENT
  Age: 79 Year
  Sex: Male
  Weight: 61 kg

DRUGS (27)
  1. ALISKIREN [Suspect]
     Indication: CARDIAC FAILURE
     Dosage: 300 MG, UNK
     Route: 048
     Dates: start: 20100401, end: 20111004
  2. ENALAPRIL [Suspect]
     Indication: CARDIAC FAILURE
     Dosage: 10 MG, BID
     Route: 048
     Dates: start: 20100401
  3. ALISKIREN [Suspect]
     Indication: CARDIAC FAILURE CHRONIC
     Dosage: 150 MG, UNK
     Route: 048
     Dates: start: 20100311, end: 20111004
  4. COMPARATOR ENALAPRIL [Suspect]
     Indication: CARDIAC FAILURE CHRONIC
     Dosage: 10 MG, UNK
     Route: 048
     Dates: start: 20100128, end: 20111004
  5. COMPARATOR ENALAPRIL [Suspect]
     Dosage: 20 MG, UNK
     Route: 048
     Dates: start: 20100210, end: 20100331
  6. CRESTOR [Suspect]
     Indication: HYPERCHOLESTEROLAEMIA
     Dosage: 2.5 MG, UNK
     Route: 048
     Dates: start: 20091216, end: 20110822
  7. LASIX [Concomitant]
     Indication: CARDIAC FAILURE CHRONIC
     Dosage: 10 MG, UNK
     Route: 048
     Dates: start: 20090218, end: 20111004
  8. LASIX [Concomitant]
     Dosage: 10 MG, UNK
     Route: 048
     Dates: start: 20111015
  9. EPLERENONE [Concomitant]
     Indication: CARDIAC FAILURE CHRONIC
     Dosage: 25 MG, UNK
     Route: 048
     Dates: start: 20090218, end: 20111004
  10. EPLERENONE [Concomitant]
     Dosage: 25 MG, UNK
     Route: 048
     Dates: start: 20111015
  11. MAINTATE [Concomitant]
     Indication: CARDIAC FAILURE CHRONIC
     Dosage: 1.25 MG, UNK
     Route: 048
     Dates: start: 20090218, end: 20110822
  12. BAYASPIRIN [Concomitant]
     Indication: THROMBOSIS PROPHYLAXIS
     Dosage: 100 MG, UNK
     Route: 048
     Dates: start: 20000706, end: 20110927
  13. BAYASPIRIN [Concomitant]
     Dosage: 100 MG, UNK
     Route: 048
     Dates: start: 20111015
  14. PLAVIX [Concomitant]
     Indication: THROMBOSIS PROPHYLAXIS
     Dosage: 75 MG, UNK
     Route: 048
     Dates: start: 20100401, end: 20110927
  15. PARIET [Concomitant]
     Indication: GASTRITIS PROPHYLAXIS
     Dosage: 10 MG, UNK
     Route: 048
     Dates: start: 20100401, end: 20111004
  16. PARIET [Concomitant]
     Dosage: 10 MG, UNK
     Route: 048
     Dates: start: 20111015
  17. NESP [Concomitant]
     Indication: ANAEMIA
     Dosage: 120 UG, UNK
     Dates: start: 20110126
  18. FLIVAS [Concomitant]
     Indication: BENIGN PROSTATIC HYPERPLASIA
     Dosage: 50 MG, UNK
     Route: 048
     Dates: start: 20090501, end: 20111004
  19. FLIVAS [Concomitant]
     Dosage: 50 MG, UNK
     Route: 048
     Dates: start: 20111015
  20. CERNILTON [Concomitant]
     Indication: BENIGN PROSTATIC HYPERPLASIA
     Dosage: 2 DF, UNK
     Route: 048
     Dates: start: 20091120, end: 20111004
  21. CERNILTON [Concomitant]
     Dosage: 2 DF, UNK
     Route: 048
     Dates: start: 20111015
  22. CASODEX [Concomitant]
     Indication: PROSTATE CANCER
     Dosage: 80 MG, UNK
     Route: 048
     Dates: start: 20070828, end: 20111004
  23. CASODEX [Concomitant]
     Dosage: 80 MG, UNK
     Route: 048
     Dates: start: 20111015
  24. ZOLADEX [Concomitant]
     Indication: PROSTATE CANCER
     Dosage: 10.8 MG, UNK
     Dates: start: 20110509
  25. NERISONA [Concomitant]
     Indication: ECZEMA
     Dosage: UNK
     Dates: start: 20110725
  26. MOHRUS [Concomitant]
     Indication: BACK PAIN
     Dosage: UNK
     Dates: start: 20110126
  27. PLETAAL [Concomitant]
     Dosage: UNK
     Dates: start: 20110928, end: 20111003

REACTIONS (3)
  - Rhabdomyolysis [Recovered/Resolved]
  - Pyrexia [Recovered/Resolved]
  - Gastric cancer [Recovering/Resolving]
